FAERS Safety Report 9009289 (Version 2)
Quarter: 2013Q1

REPORT INFORMATION
  Report Type: Report from Study
  Country: ES (occurrence: ES)
  Receive Date: 20130111
  Receipt Date: 20130129
  Transmission Date: 20140127
  Serious: Yes (Life-Threatening, Other)
  Sender: FDA-Public Use
  Company Number: ES-ASTELLAS-2013EU000091

PATIENT
  Age: 49 Year
  Sex: Male

DRUGS (3)
  1. TACROLIMUS SYSTEMIC [Suspect]
     Dosage: UNK UNK, UNKNOWN/D
     Route: 065
  2. BORTEZOMIB [Suspect]
     Dosage: 13 MG/M2, UNKNOWN/D
     Route: 042
     Dates: start: 20121119
  3. RAPAMYCIN [Suspect]
     Dosage: UNK
     Route: 065

REACTIONS (2)
  - Bronchospasm [Not Recovered/Not Resolved]
  - Microangiopathy [Not Recovered/Not Resolved]
